FAERS Safety Report 6966531-5 (Version None)
Quarter: 2010Q3

REPORT INFORMATION
  Report Type: 
  Country: None (occurrence: None)
  Receive Date: 20100906
  Receipt Date: 20100826
  Transmission Date: 20110219
  Serious: No
  Sender: FDA-Public Use
  Company Number: US-BIOGENIDEC-2010BI007125

PATIENT
  Sex: Female

DRUGS (1)
  1. TYSABRI [Suspect]
     Indication: MULTIPLE SCLEROSIS
     Route: 042
     Dates: start: 20090909

REACTIONS (34)
  - CLAVICLE FRACTURE [None]
  - DEHYDRATION [None]
  - DEPRESSION [None]
  - DIZZINESS [None]
  - DYSPNOEA [None]
  - ENDODONTIC PROCEDURE [None]
  - FACE INJURY [None]
  - FALL [None]
  - FATIGUE [None]
  - FEELING COLD [None]
  - HOT FLUSH [None]
  - HYPERSOMNIA [None]
  - HYPOAESTHESIA [None]
  - JOINT EFFUSION [None]
  - JOINT INJURY [None]
  - LOSS OF CONSCIOUSNESS [None]
  - MEMORY IMPAIRMENT [None]
  - MENOPAUSAL SYMPTOMS [None]
  - MENTAL IMPAIRMENT [None]
  - MOUTH INJURY [None]
  - MUSCULOSKELETAL PAIN [None]
  - NASOPHARYNGITIS [None]
  - NIGHT SWEATS [None]
  - PERIORBITAL HAEMATOMA [None]
  - POOR QUALITY SLEEP [None]
  - PYREXIA [None]
  - RASH PAPULAR [None]
  - ROTATOR CUFF SYNDROME [None]
  - SKELETAL INJURY [None]
  - SKIN LACERATION [None]
  - TOOTH FRACTURE [None]
  - TREMOR [None]
  - VERTIGO [None]
  - WEIGHT DECREASED [None]
